FAERS Safety Report 5022159-8 (Version None)
Quarter: 2006Q2

REPORT INFORMATION
  Report Type: 
  Country: None (occurrence: None)
  Receive Date: 20060428
  Receipt Date: 20060103
  Transmission Date: 20061013
  Serious: Yes (Death)
  Sender: FDA-Public Use
  Company Number: COT_0357_2006

PATIENT
  Age: 46 Year
  Sex: Female
  Weight: 69.2 kg

DRUGS (13)
  1. VENTAVIS [Suspect]
     Indication: PULMONARY HYPERTENSION
     Dosage: 5 MCG 6XD IH
     Dates: start: 20050701
  2. OXYGEN [Concomitant]
  3. PREDNISONE [Concomitant]
  4. TOPAMAX [Concomitant]
  5. PAMELOR [Concomitant]
  6. DIAZEPAM [Concomitant]
  7. EFFEXOR XR [Concomitant]
  8. AMBIEN [Concomitant]
  9. PROMETHAZINE [Concomitant]
  10. EVISTA [Concomitant]
  11. FUROSEMIDE [Concomitant]
  12. NATALCARE [Concomitant]
  13. AXID [Concomitant]

REACTIONS (3)
  - CARDIAC FAILURE [None]
  - HYPOAESTHESIA [None]
  - SYNCOPE [None]
